FAERS Safety Report 18599851 (Version 1)
Quarter: 2020Q4

REPORT INFORMATION
  Report Type: Spontaneous
  Country: US (occurrence: US)
  Receive Date: 20201209
  Receipt Date: 20201209
  Transmission Date: 20210114
  Serious: Yes (Death)
  Sender: FDA-Public Use
  Company Number: None

PATIENT
  Age: 83 Year
  Sex: Female

DRUGS (11)
  1. ONDANSETRON 4MG [Concomitant]
     Active Substance: ONDANSETRON
     Dates: start: 20200723, end: 20201202
  2. NUEDEXTA [Suspect]
     Active Substance: DEXTROMETHORPHAN HYDROBROMIDE\QUINIDINE SULFATE
     Indication: AFFECT LABILITY
     Route: 048
     Dates: start: 20200814, end: 20201202
  3. PROMETHAZINE 12.5MG [Concomitant]
     Dates: start: 20200807, end: 20201202
  4. FOLIC ACID 1MG [Concomitant]
     Active Substance: FOLIC ACID
     Dates: start: 20200812, end: 20201202
  5. MIRTAZAPINE 15MG [Concomitant]
     Active Substance: MIRTAZAPINE
     Dates: start: 20200812, end: 20201202
  6. VITAMIN B1 100MG [Concomitant]
     Dates: start: 20200812, end: 20201202
  7. IMATINIB MESYLATE. [Suspect]
     Active Substance: IMATINIB MESYLATE
     Indication: PLASMA CELL MYELOMA
     Route: 048
     Dates: start: 20200814, end: 20201202
  8. EFFER-K 20MEQ [Concomitant]
     Dates: start: 20200814, end: 20201202
  9. MAGNESIUM 250GM [Concomitant]
     Dates: start: 20200814, end: 20201202
  10. FUROSEMIDE 20MG [Concomitant]
     Active Substance: FUROSEMIDE
     Dates: start: 20190514, end: 20201202
  11. ONE TOUCH VERIO [Concomitant]
     Dates: start: 20190522, end: 20201202

REACTIONS (1)
  - Death [None]

NARRATIVE: CASE EVENT DATE: 20201202
